FAERS Safety Report 12253243 (Version 1)
Quarter: 2016Q2

REPORT INFORMATION
  Report Type: Spontaneous
  Country: US (occurrence: None)
  Receive Date: 20160408
  Receipt Date: 20160408
  Transmission Date: 20160815
  Serious: No
  Sender: FDA-Public Use
  Company Number: None

PATIENT
  Age: 50 Year
  Sex: Male
  Weight: 90 kg

DRUGS (2)
  1. NOVOSEVEN RT [Suspect]
     Active Substance: COAGULATION FACTOR VIIA RECOMBINANT HUMAN
     Indication: ACUTE HEPATIC FAILURE
     Dosage: 1 MG ONCE INTRAVENOUS (NOT OTHERWISE SPECIFIED)
     Route: 042
     Dates: start: 20160407, end: 20160407
  2. NOVOSEVEN RT [Suspect]
     Active Substance: COAGULATION FACTOR VIIA RECOMBINANT HUMAN
     Indication: HAEMORRHAGE
     Dosage: 1 MG ONCE INTRAVENOUS (NOT OTHERWISE SPECIFIED)
     Route: 042
     Dates: start: 20160407, end: 20160407

REACTIONS (2)
  - Syringe issue [None]
  - Wrong technique in product usage process [None]

NARRATIVE: CASE EVENT DATE: 20160407
